FAERS Safety Report 10196528 (Version 1)
Quarter: 2014Q2

REPORT INFORMATION
  Report Type: Report from Study
  Country: CA (occurrence: CA)
  Receive Date: 20140527
  Receipt Date: 20140527
  Transmission Date: 20141212
  Serious: Yes (Other)
  Sender: FDA-Public Use
  Company Number: CA-JNJFOC-20140514050

PATIENT
  Age: 74 Year
  Sex: Female
  Weight: 66.3 kg

DRUGS (6)
  1. REMICADE [Suspect]
     Indication: RHEUMATOID ARTHRITIS
     Route: 042
     Dates: start: 2002
  2. METHOTREXATE [Concomitant]
     Route: 065
  3. FOLIC ACID [Concomitant]
     Route: 065
  4. ZOCOR [Concomitant]
     Route: 065
  5. LEVOTHYROXINE [Concomitant]
     Route: 065
  6. HCTZ [Concomitant]
     Route: 065

REACTIONS (2)
  - Retinal tear [Recovering/Resolving]
  - Vitreous floaters [Unknown]
